FAERS Safety Report 13528497 (Version 2)
Quarter: 2017Q3

REPORT INFORMATION
  Report Type: Spontaneous
  Country: US (occurrence: US)
  Receive Date: 20170509
  Receipt Date: 20170802
  Transmission Date: 20171127
  Serious: No
  Sender: FDA-Public Use
  Company Number: PHEH2017US013584

PATIENT
  Age: 27 Year
  Sex: Female

DRUGS (1)
  1. CIPRODEX [Suspect]
     Active Substance: CIPROFLOXACIN HYDROCHLORIDE\DEXAMETHASONE
     Indication: OTITIS EXTERNA
     Route: 001

REACTIONS (4)
  - Tenderness [Unknown]
  - Hypoacusis [Unknown]
  - Ear pain [Unknown]
  - Ear swelling [Unknown]

NARRATIVE: CASE EVENT DATE: 20170502
